FAERS Safety Report 8775584 (Version 1)
Quarter: 2012Q4

REPORT INFORMATION
  Report Type: 
  Country: US (occurrence: US)
  Receive Date: 20120907
  Receipt Date: 20120907
  Transmission Date: 20130627
  Serious: Yes (Hospitalization)
  Sender: FDA-Public Use
  Company Number: CHPA2012US019364

PATIENT
  Age: 93 Year
  Sex: Female

DRUGS (3)
  1. VOLTAREN GEL [Suspect]
     Dosage: Unk, Unk
     Route: 061
     Dates: start: 201207, end: 20120904
  2. ASPIRIN ^BAYER^ [Concomitant]
     Dosage: 81 mg, UNK
  3. PRILOSEC [Concomitant]

REACTIONS (3)
  - Retching [Not Recovered/Not Resolved]
  - Dyspepsia [Not Recovered/Not Resolved]
  - Abdominal pain upper [Not Recovered/Not Resolved]
